FAERS Safety Report 6732127-3 (Version None)
Quarter: 2010Q2

REPORT INFORMATION
  Report Type: 
  Country: None (occurrence: None)
  Receive Date: 20100519
  Receipt Date: 20100511
  Transmission Date: 20101027
  Serious: Yes (Death)
  Sender: FDA-Public Use
  Company Number: PE-GENZYME-THYM-1001509

PATIENT
  Age: 37 Year
  Sex: Male

DRUGS (3)
  1. THYMOGLOBULIN [Suspect]
     Indication: DRUG USE FOR UNKNOWN INDICATION
     Dosage: UNK
     Route: 042
  2. CYCLOSPORINE [Concomitant]
     Indication: APLASTIC ANAEMIA
     Dosage: UNK
     Route: 065
  3. PREDNISONE [Concomitant]
     Indication: APLASTIC ANAEMIA
     Dosage: UNK
     Route: 065

REACTIONS (1)
  - CONVULSION [None]
